FAERS Safety Report 6805864-X (Version None)
Quarter: 2010Q2

REPORT INFORMATION
  Report Type: 
  Country: None (occurrence: None)
  Receive Date: 20100629
  Receipt Date: 20071023
  Transmission Date: 20101027
  Serious: No
  Sender: FDA-Public Use
  Company Number: US-PFIZER INC-2007089556

PATIENT
  Sex: Male
  Weight: 64.4 kg

DRUGS (2)
  1. VIAGRA [Suspect]
     Indication: ILL-DEFINED DISORDER
     Route: 048
     Dates: start: 20071001, end: 20071001
  2. LAMICTAL [Concomitant]

REACTIONS (5)
  - DRY MOUTH [None]
  - FLUSHING [None]
  - HEADACHE [None]
  - MALAISE [None]
  - VISION BLURRED [None]
